FAERS Safety Report 4868379-4 (Version None)
Quarter: 2005Q4

REPORT INFORMATION
  Report Type: 
  Country: None (occurrence: None)
  Receive Date: 20051229
  Receipt Date: 20051223
  Transmission Date: 20060501
  Serious: Yes (Other)
  Sender: FDA-Public Use
  Company Number: US-GLAXOSMITHKLINE-A0587115A

PATIENT
  Age: 23 Year
  Sex: Female

DRUGS (1)
  1. BUPROPION [Suspect]
     Indication: DEPRESSION
     Dosage: 200MG PER DAY
     Dates: start: 20050101

REACTIONS (4)
  - ABDOMINAL TENDERNESS [None]
  - ABORTION SPONTANEOUS [None]
  - PREMATURE RUPTURE OF MEMBRANES [None]
  - PYREXIA [None]
